FAERS Safety Report 15952057 (Version 1)
Quarter: 2019Q1

REPORT INFORMATION
  Report Type: Spontaneous
  Country: IT (occurrence: IT)
  Receive Date: 20190212
  Receipt Date: 20190212
  Transmission Date: 20190417
  Serious: Yes (Hospitalization)
  Sender: FDA-Public Use
  Company Number: IT-PFIZER INC-2019055448

PATIENT
  Age: 42 Year
  Sex: Male

DRUGS (1)
  1. ALPRAZOLAM. [Suspect]
     Active Substance: ALPRAZOLAM
     Indication: ALCOHOL DETOXIFICATION
     Dosage: 15 MG, 1X/DAY
     Route: 048

REACTIONS (4)
  - Drug abuse [Unknown]
  - Overdose [Unknown]
  - Product use in unapproved indication [Unknown]
  - Drug dependence [Unknown]

NARRATIVE: CASE EVENT DATE: 20190121
